FAERS Safety Report 6049493-7 (Version None)
Quarter: 2009Q1

REPORT INFORMATION
  Report Type: 
  Country: None (occurrence: None)
  Receive Date: 20090121
  Receipt Date: 20090115
  Transmission Date: 20090719
  Serious: Yes (Other)
  Sender: FDA-Public Use
  Company Number: THQ2009A00240

PATIENT
  Age: 53 Year
  Sex: Female

DRUGS (1)
  1. LANSOPRAZOLE [Suspect]
     Route: 048

REACTIONS (2)
  - OEDEMA MOUTH [None]
  - PHARYNGEAL OEDEMA [None]
